FAERS Safety Report 16304787 (Version 1)
Quarter: 2019Q2

REPORT INFORMATION
  Report Type: Spontaneous
  Country: US (occurrence: US)
  Receive Date: 20190513
  Receipt Date: 20190513
  Transmission Date: 20190711
  Serious: Yes (Hospitalization)
  Sender: FDA-Public Use
  Company Number: US-ARRAY-2019-05548

PATIENT

DRUGS (2)
  1. BRAFTOVI [Suspect]
     Active Substance: ENCORAFENIB
     Indication: MALIGNANT MELANOMA IN SITU
     Dosage: 300 MG, QD
     Route: 048
     Dates: start: 20181229
  2. MEKTOVI [Suspect]
     Active Substance: BINIMETINIB
     Indication: MALIGNANT MELANOMA IN SITU
     Dosage: 30 MG, BID
     Route: 048
     Dates: start: 20181229

REACTIONS (2)
  - Brain operation [Unknown]
  - Off label use [Unknown]

NARRATIVE: CASE EVENT DATE: 20181228
